FAERS Safety Report 6267926-8 (Version None)
Quarter: 2009Q3

REPORT INFORMATION
  Report Type: 
  Country: None (occurrence: None)
  Receive Date: 20090713
  Receipt Date: 20090628
  Transmission Date: 20100115
  Serious: Yes (Hospitalization)
  Sender: FDA-Public Use
  Company Number: 8048389

PATIENT
  Age: 55 Year
  Sex: Female
  Weight: 45.3 kg

DRUGS (2)
  1. CIMZIA [Suspect]
     Indication: CROHN'S DISEASE
     Dosage: 400 MG SC
     Route: 058
     Dates: start: 20081109
  2. PREDNISONE [Concomitant]

REACTIONS (3)
  - DIARRHOEA [None]
  - INFLUENZA [None]
  - MUSCLE SPASMS [None]
